FAERS Safety Report 4322509-1 (Version None)
Quarter: 2004Q1

REPORT INFORMATION
  Report Type: 
  Country: None (occurrence: None)
  Receive Date: 20040319
  Receipt Date: 20040304
  Transmission Date: 20041129
  Serious: Yes (Hospitalization)
  Sender: FDA-Public Use
  Company Number: 02100-JPN-04-0043

PATIENT
  Age: 78 Year
  Sex: Female

DRUGS (9)
  1. CILOSTAZOL [Suspect]
     Indication: ARTERIOSCLEROSIS
     Dosage: 200 MG ORAL
     Route: 048
     Dates: start: 20040109, end: 20040110
  2. GLYCERYL TRINITRATE [Concomitant]
  3. UBIDECARENONE [Concomitant]
  4. METILDIGOXIN [Concomitant]
  5. DENOPAMINE [Concomitant]
  6. AZOSEMIDE [Concomitant]
  7. SPIRONOLACTONE [Concomitant]
  8. LOSARTAN POTASSIUM [Concomitant]
  9. WARFARIN POTASSIUM [Concomitant]

REACTIONS (3)
  - ARRHYTHMIA [None]
  - MALAISE [None]
  - VENTRICULAR TACHYCARDIA [None]
